FAERS Safety Report 10030930 (Version 2)
Quarter: 2014Q1

REPORT INFORMATION
  Report Type: Spontaneous
  Country: US (occurrence: US)
  Receive Date: 20140323
  Receipt Date: 20140323
  Transmission Date: 20141002
  Serious: Yes (Disabling)
  Sender: FDA-Public Use
  Company Number: US-GE HEALTHCARE MEDICAL DIAGNOSTICS-OSCN-PR-0808S-0482

PATIENT
  Age: 27 Year
  Sex: Male

DRUGS (7)
  1. OMNISCAN [Suspect]
     Indication: MEDICAL DEVICE COMPLICATION
     Route: 042
     Dates: start: 20060831, end: 20060831
  2. OMNISCAN [Suspect]
     Indication: MEDICAL DEVICE COMPLICATION
     Route: 042
     Dates: start: 20060919, end: 20060919
  3. OMNISCAN [Suspect]
     Indication: SUPERIOR VENA CAVA SYNDROME
     Dates: start: 20060920, end: 20060920
  4. OMNISCAN [Suspect]
     Indication: SUPERIOR VENA CAVA SYNDROME
     Dates: start: 20060926, end: 20060926
  5. MAGNEVIST [Suspect]
     Indication: FACIAL PARESIS
     Route: 042
     Dates: start: 20050712, end: 20050712
  6. MAGNEVIST [Suspect]
     Indication: CONVULSION
     Route: 042
     Dates: start: 20060126, end: 20060126
  7. MAGNEVIST [Suspect]
     Indication: MUSCULOSKELETAL PAIN
     Route: 042
     Dates: start: 20061030, end: 20061030

REACTIONS (1)
  - Nephrogenic systemic fibrosis [Not Recovered/Not Resolved]
